FAERS Safety Report 4429558-3 (Version None)
Quarter: 2004Q3

REPORT INFORMATION
  Report Type: 
  Country: None (occurrence: None)
  Receive Date: 20040819
  Receipt Date: 20040806
  Transmission Date: 20050211
  Serious: Yes (Life-Threatening)
  Sender: FDA-Public Use
  Company Number: JP-GLAXOSMITHKLINE-B0342114A

PATIENT
  Age: 74 Year
  Sex: Male

DRUGS (1)
  1. VALTREX [Suspect]
     Indication: HERPES ZOSTER
     Dosage: 1000MG THREE TIMES PER DAY
     Route: 048
     Dates: start: 20040730, end: 20040802

REACTIONS (6)
  - ERYTHEMA [None]
  - HYPERTHERMIA [None]
  - LIVER DISORDER [None]
  - MUCOSAL EROSION [None]
  - RENAL DISORDER [None]
  - STOMATITIS [None]
